FAERS Safety Report 6196406-3 (Version None)
Quarter: 2009Q2

REPORT INFORMATION
  Report Type: 
  Country: None (occurrence: None)
  Receive Date: 20090518
  Receipt Date: 20090505
  Transmission Date: 20091009
  Serious: Yes (Hospitalization)
  Sender: FDA-Public Use
  Company Number: 2009AL002823

PATIENT
  Age: 77 Year
  Sex: Male

DRUGS (7)
  1. RAMIPRIL [Suspect]
     Dosage: 1.25 MG; QD;
  2. AMLODIPINE BESYLATE [Suspect]
     Dosage: 5 MG; QD;
  3. ACETYLSALICYLATE LYSINE [Concomitant]
  4. CLOPIDOGREL [Concomitant]
  5. SIMVASTATIN [Concomitant]
  6. PANTOPRAZOLE SODIUM [Concomitant]
  7. INSULIN LISPRO [Concomitant]

REACTIONS (13)
  - BENIGN PROSTATIC HYPERPLASIA [None]
  - BLADDER DISTENSION [None]
  - BLOOD ALKALINE PHOSPHATASE INCREASED [None]
  - C-REACTIVE PROTEIN INCREASED [None]
  - ESCHERICHIA URINARY TRACT INFECTION [None]
  - GENERAL PHYSICAL HEALTH DETERIORATION [None]
  - HAEMATURIA [None]
  - LEUKOCYTURIA [None]
  - PROSTATIC SPECIFIC ANTIGEN INCREASED [None]
  - PROTEINURIA [None]
  - PYREXIA [None]
  - RENAL FAILURE ACUTE [None]
  - WHITE BLOOD CELL COUNT INCREASED [None]
